FAERS Safety Report 23953519 (Version 2)
Quarter: 2024Q2

REPORT INFORMATION
  Report Type: Spontaneous
  Country: US (occurrence: US)
  Receive Date: 20240608
  Receipt Date: 20240613
  Transmission Date: 20240715
  Serious: No
  Sender: FDA-Public Use
  Company Number: US-UNITED THERAPEUTICS-UNT-2024-010551

PATIENT
  Age: 54 Year
  Sex: Female

DRUGS (5)
  1. ORENITRAM [Interacting]
     Active Substance: TREPROSTINIL
     Indication: Pulmonary arterial hypertension
     Dosage: 0.375 MG, TID
  2. ORENITRAM [Interacting]
     Active Substance: TREPROSTINIL
     Dosage: 0.75 MG, TID
  3. ORENITRAM [Interacting]
     Active Substance: TREPROSTINIL
     Dosage: 1.125 MG, TID
  4. ORENITRAM [Interacting]
     Active Substance: TREPROSTINIL
     Dosage: 1.375 MG, TID
  5. ORENITRAM [Interacting]
     Active Substance: TREPROSTINIL
     Dosage: UNK

REACTIONS (7)
  - Fatigue [Not Recovered/Not Resolved]
  - Dizziness [Not Recovered/Not Resolved]
  - Headache [Not Recovered/Not Resolved]
  - Feeling abnormal [Not Recovered/Not Resolved]
  - Drug interaction [Not Recovered/Not Resolved]
  - Blood pressure systolic decreased [Not Recovered/Not Resolved]
  - Treatment noncompliance [Not Recovered/Not Resolved]

NARRATIVE: CASE EVENT DATE: 20240406
